FAERS Safety Report 7042522-3 (Version None)
Quarter: 2010Q4

REPORT INFORMATION
  Report Type: 
  Country: None (occurrence: None)
  Receive Date: 20101013
  Receipt Date: 20100129
  Transmission Date: 20110411
  Serious: No
  Sender: FDA-Public Use
  Company Number: US-ASTRAZENECA-2009SE21204

PATIENT
  Age: 49 Year
  Sex: Female
  Weight: 66.7 kg

DRUGS (5)
  1. SYMBICORT [Suspect]
     Indication: ASTHMA
     Dosage: 80/4.5 MCG, TWO PUFFS BID
     Route: 055
     Dates: start: 20080414
  2. SYMBICORT [Suspect]
     Indication: CHRONIC OBSTRUCTIVE PULMONARY DISEASE
     Dosage: 80/4.5 MCG, TWO PUFFS BID
     Route: 055
     Dates: start: 20080414
  3. ZYRTEC-D 12 HOUR [Concomitant]
     Indication: PHARYNGITIS
     Route: 048
     Dates: start: 20030521
  4. FLONASE [Concomitant]
     Indication: MULTIPLE ALLERGIES
     Dosage: 1 SPRAY EACH NOSTRIL
     Route: 045
     Dates: start: 20070522
  5. ALBUTEROL [Concomitant]
     Indication: ASTHMA
     Dosage: 2 PUFFS GIVEN AT 4 PM
     Route: 048
     Dates: start: 20080411

REACTIONS (3)
  - COUGH [None]
  - HYPERTENSION [None]
  - INCORRECT DOSE ADMINISTERED [None]
